FAERS Safety Report 6177657-0 (Version None)
Quarter: 2009Q2

REPORT INFORMATION
  Report Type: 
  Country: None (occurrence: None)
  Receive Date: 20090430
  Receipt Date: 20090430
  Transmission Date: 20091009
  Serious: No
  Sender: FDA-Public Use
  Company Number: None

PATIENT
  Sex: Female
  Weight: 68.0396 kg

DRUGS (2)
  1. 0.5/0.75 ROBIVICAINE WITH 1/200 000 EPI INFUSED [Suspect]
     Indication: NERVE BLOCK
     Dosage: 30 CC OF 50/50 MIX AXILLARY
     Dates: start: 20090420
  2. 0.5/0.75 ROBIVICAINE WITH 1/200 000 EPI INFUSED [Suspect]

REACTIONS (2)
  - CONVULSION [None]
  - POST PROCEDURAL COMPLICATION [None]
